FAERS Safety Report 9907826 (Version 1)
Quarter: 2014Q1

REPORT INFORMATION
  Report Type: Spontaneous
  Country: US (occurrence: US)
  Receive Date: 20140219
  Receipt Date: 20140219
  Transmission Date: 20141002
  Serious: No
  Sender: FDA-Public Use
  Company Number: US-BIOGENIDEC-2014BI013832

PATIENT
  Age: 32 Year
  Sex: Male

DRUGS (4)
  1. TECFIDERA [Suspect]
     Indication: MULTIPLE SCLEROSIS
     Route: 048
     Dates: start: 201312
  2. VITAMIN D [Concomitant]
  3. ASA [Concomitant]
  4. IBUPROFEN [Concomitant]

REACTIONS (2)
  - Insomnia [Unknown]
  - Night sweats [Unknown]
